FAERS Safety Report 25111541 (Version 1)
Quarter: 2025Q1

REPORT INFORMATION
  Report Type: Spontaneous
  Country: US (occurrence: US)
  Receive Date: 20250324
  Receipt Date: 20250324
  Transmission Date: 20250409
  Serious: Yes (Other)
  Sender: BAYER HEALTHCARE PHARMACEUTICALS INC.
  Company Number: US-BAYER-2025A034212

PATIENT
  Age: 62 Year
  Sex: Male

DRUGS (1)
  1. JIVI [Suspect]
     Active Substance: DAMOCTOCOG ALFA PEGOL

REACTIONS (4)
  - Seizure [None]
  - Haemorrhage [Recovered/Resolved]
  - Fall [None]
  - Peripheral swelling [None]

NARRATIVE: CASE EVENT DATE: 20250304
